FAERS Safety Report 4642882-4 (Version None)
Quarter: 2005Q2

REPORT INFORMATION
  Report Type: 
  Country: None (occurrence: None)
  Receive Date: 20050420
  Receipt Date: 20050407
  Transmission Date: 20051028
  Serious: Yes (Death, Other)
  Sender: FDA-Public Use
  Company Number: JP_050105711

PATIENT
  Age: 29 Year
  Sex: Female
  Weight: 66 kg

DRUGS (6)
  1. ZYPREXA [Suspect]
     Indication: SCHIZOPHRENIA
     Dosage: 20 MG DAY
     Dates: start: 20020101
  2. RISPERDAL [Concomitant]
  3. BIPERIDEN HYDROCHLORIDE TAB [Concomitant]
  4. CHLORPROMAZINE [Concomitant]
  5. FLUNITRAZEPAM [Concomitant]
  6. FLUPHENAZINE DECANOATE [Concomitant]

REACTIONS (17)
  - ACIDOSIS [None]
  - BLOOD CREATINE PHOSPHOKINASE INCREASED [None]
  - BLOOD LACTATE DEHYDROGENASE INCREASED [None]
  - BLOOD POTASSIUM INCREASED [None]
  - BLOOD SODIUM DECREASED [None]
  - CARDIO-RESPIRATORY ARREST [None]
  - DEHYDRATION [None]
  - DELUSION [None]
  - DIABETIC COMA [None]
  - HAEMOGLOBIN DECREASED [None]
  - KETOSIS [None]
  - LYMPHADENOPATHY [None]
  - NASOPHARYNGITIS [None]
  - PHARYNGEAL ERYTHEMA [None]
  - RED BLOOD CELL COUNT DECREASED [None]
  - TENDERNESS [None]
  - WHITE BLOOD CELL COUNT INCREASED [None]
